FAERS Safety Report 6184667-6 (Version None)
Quarter: 2009Q2

REPORT INFORMATION
  Report Type: 
  Country: None (occurrence: None)
  Receive Date: 20090508
  Receipt Date: 20090506
  Transmission Date: 20091009
  Serious: Yes (Hospitalization)
  Sender: FDA-Public Use
  Company Number: GB-TEVA-194046ISR

PATIENT
  Age: 73 Year
  Sex: Female

DRUGS (2)
  1. FLUOXETINE HCL [Suspect]
     Indication: DEPRESSION
     Route: 048
     Dates: end: 20090101
  2. TAMOXIFEN CITRATE [Suspect]
     Indication: BREAST CANCER
     Route: 048
     Dates: start: 20080601, end: 20090101

REACTIONS (1)
  - INTERSTITIAL LUNG DISEASE [None]
